FAERS Safety Report 19912712 (Version 1)
Quarter: 2021Q4

REPORT INFORMATION
  Report Type: Spontaneous
  Country: US (occurrence: US)
  Receive Date: 20211004
  Receipt Date: 20211004
  Transmission Date: 20220303
  Serious: No
  Sender: FDA-Public Use
  Company Number: US-AMGEN-USASP2021149012

PATIENT
  Age: 78 Year
  Sex: Female

DRUGS (3)
  1. PROLIA [Suspect]
     Active Substance: DENOSUMAB
     Indication: Osteoporosis postmenopausal
     Dosage: UNK
     Route: 065
     Dates: start: 2019
  2. ALLEGRA [Concomitant]
     Active Substance: FEXOFENADINE HYDROCHLORIDE
  3. COVID-19 VACCINE [Concomitant]

REACTIONS (8)
  - Gingivitis [Unknown]
  - Gingival bleeding [Unknown]
  - Hypersensitivity [Unknown]
  - Headache [Recovered/Resolved]
  - Pain [Recovered/Resolved]
  - Nasopharyngitis [Unknown]
  - Back pain [Recovered/Resolved]
  - Arthralgia [Not Recovered/Not Resolved]
